FAERS Safety Report 15785701 (Version 1)
Quarter: 2019Q1

REPORT INFORMATION
  Report Type: Spontaneous
  Country: CN (occurrence: CN)
  Receive Date: 20190103
  Receipt Date: 20190103
  Transmission Date: 20190417
  Serious: Yes (Hospitalization)
  Sender: FDA-Public Use
  Company Number: CN-ELI_LILLY_AND_COMPANY-CN201812012531

PATIENT
  Age: 66 Year
  Sex: Female
  Weight: 60 kg

DRUGS (8)
  1. HUMALOG MIX50/50 [Suspect]
     Active Substance: INSULIN LISPRO
     Dosage: 12 U, DAILY AT NOON
     Route: 058
     Dates: start: 2017, end: 201805
  2. ACARBOSE. [Concomitant]
     Active Substance: ACARBOSE
     Indication: PRODUCT USED FOR UNKNOWN INDICATION
  3. INSULIN GLARGINE [Concomitant]
     Active Substance: INSULIN GLARGINE
     Indication: PRODUCT USED FOR UNKNOWN INDICATION
  4. HUMALOG [Suspect]
     Active Substance: INSULIN LISPRO
     Dosage: 12 U, DAILY AT NOON
     Route: 058
     Dates: start: 201805
  5. HUMALOG MIX50/50 [Suspect]
     Active Substance: INSULIN LISPRO
     Dosage: 14 U, DAILY AT NIGHT
     Route: 058
     Dates: start: 2017, end: 201805
  6. HUMALOG MIX50/50 [Suspect]
     Active Substance: INSULIN LISPRO
     Indication: DIABETES MELLITUS
     Dosage: 14 U, EACH MORNING
     Route: 058
     Dates: start: 2017, end: 201805
  7. HUMALOG [Suspect]
     Active Substance: INSULIN LISPRO
     Indication: DIABETES MELLITUS
     Dosage: 14 U, EACH MORNING
     Route: 058
     Dates: start: 201805
  8. HUMALOG [Suspect]
     Active Substance: INSULIN LISPRO
     Dosage: 14 U, DAILY AT NIGHT
     Route: 058
     Dates: start: 201805

REACTIONS (5)
  - Blood glucose increased [Not Recovered/Not Resolved]
  - Blood glucose abnormal [Not Recovered/Not Resolved]
  - Liver disorder [Unknown]
  - Spleen disorder [Unknown]
  - Renal disorder [Unknown]
